FAERS Safety Report 10680132 (Version 2)
Quarter: 2015Q1

REPORT INFORMATION
  Report Type: Spontaneous
  Country: IT (occurrence: IT)
  Receive Date: 20141229
  Receipt Date: 20150313
  Transmission Date: 20150720
  Serious: Yes (Hospitalization, Other)
  Sender: FDA-Public Use
  Company Number: IT-PFIZER INC-2014355199

PATIENT
  Age: 75 Year
  Sex: Male

DRUGS (2)
  1. MODURETIC 5-50 [Concomitant]
     Active Substance: AMILORIDE HYDROCHLORIDE\HYDROCHLOROTHIAZIDE
     Indication: HYPERTENSION
     Dosage: 1 DF, UNK
  2. CELECOXIB. [Suspect]
     Active Substance: CELECOXIB
     Dosage: 1 DF, TOTAL
     Route: 048
     Dates: start: 20140501, end: 20140501

REACTIONS (3)
  - Urticaria [Recovered/Resolved]
  - Palatal oedema [Recovered/Resolved]
  - Angioedema [Recovered/Resolved]

NARRATIVE: CASE EVENT DATE: 20140501
